FAERS Safety Report 9526499 (Version 3)
Quarter: 2013Q4

REPORT INFORMATION
  Report Type: Report from Study
  Country: FR (occurrence: PT)
  Receive Date: 20130916
  Receipt Date: 20131002
  Transmission Date: 20140711
  Serious: Yes (Death)
  Sender: FDA-Public Use
  Company Number: PT-FRI-1000048583

PATIENT
  Age: 67 Year
  Sex: Female
  Weight: 40 kg

DRUGS (13)
  1. LEVOMILNACIPRAN EXTENDED-RELEASE CAP (DOUBLE-BLIND) [Suspect]
     Indication: CEREBROVASCULAR ACCIDENT
     Dosage: 2 DOSAGE FORMS
     Dates: start: 20130528, end: 20130610
  2. METOCLOPRAMIDE [Concomitant]
     Indication: NAUSEA
     Dosage: 10 MG
     Route: 042
     Dates: start: 20130522, end: 20130613
  3. RANITIDINE [Concomitant]
     Dosage: 150 MG
     Dates: start: 20130521, end: 20130522
  4. AMITRIPTYLINE [Concomitant]
     Indication: NEURALGIA
     Dosage: 10 MG
     Dates: start: 20130605
  5. LISINOPRIL [Concomitant]
     Indication: HYPERTENSION
     Dosage: 5 MG
     Dates: start: 20130527, end: 20130606
  6. TRAMADOL [Concomitant]
     Indication: NEURALGIA
     Dosage: 100 MG
     Dates: start: 20130607, end: 20130613
  7. INSULIN [Concomitant]
     Dosage: 100 UI/ML
  8. ENOXAPARIN [Concomitant]
     Indication: COAGULOPATHY
     Dosage: 60 MG
     Route: 058
     Dates: start: 20130704, end: 20130705
  9. ENOXAPARIN [Concomitant]
     Dosage: 40 MG
     Dates: start: 20130524, end: 20130630
  10. ROSUVASTATIN [Concomitant]
     Indication: HYPERLIPIDAEMIA
     Dosage: 5 MG
     Dates: start: 20130521, end: 20130524
  11. CEFTRIAXONE [Concomitant]
     Indication: URINARY TRACT INFECTION
     Dosage: 1000 MG
     Route: 042
     Dates: start: 20130521, end: 20130526
  12. ACETYLSALICYLIC ACID [Concomitant]
     Indication: UNEVALUABLE EVENT
     Dosage: 100 MG
     Dates: start: 20130617, end: 20130630
  13. WARFARIN [Concomitant]
     Dosage: 5 MG
     Route: 058
     Dates: start: 20130706, end: 20130707

REACTIONS (1)
  - Rectal haemorrhage [Fatal]
